FAERS Safety Report 10537718 (Version 1)
Quarter: 2014Q4

REPORT INFORMATION
  Report Type: Spontaneous
  Country: US (occurrence: None)
  Receive Date: 20141022
  Receipt Date: 20141022
  Transmission Date: 20150529
  Serious: Yes (Hospitalization)
  Sender: FDA-Public Use
  Company Number: None

PATIENT
  Age: 63 Year
  Sex: Female
  Weight: 87.7 kg

DRUGS (22)
  1. RIBAVIRIN. [Suspect]
     Active Substance: RIBAVIRIN
     Indication: HEPATITIS C
     Dosage: 600 2XDAILY PO
     Route: 048
     Dates: start: 20140207, end: 20140330
  2. KLOR-CON [Concomitant]
     Active Substance: POTASSIUM CHLORIDE
  3. LIDOCAINE. [Concomitant]
     Active Substance: LIDOCAINE
  4. PROMACTE [Concomitant]
  5. MELOXICAM. [Concomitant]
     Active Substance: MELOXICAM
  6. KENALOG [Concomitant]
     Active Substance: TRIAMCINOLONE ACETONIDE
  7. TYLENOL EXTRA STRENGTH [Concomitant]
     Active Substance: ACETAMINOPHEN
  8. ALPROAZOLAM [Concomitant]
  9. OMEPRAZOLE. [Concomitant]
     Active Substance: OMEPRAZOLE
  10. ZOFRAN [Concomitant]
     Active Substance: ONDANSETRON HYDROCHLORIDE
  11. POTASSIUM [Concomitant]
     Active Substance: POTASSIUM
  12. FUROSEMIDE. [Concomitant]
     Active Substance: FUROSEMIDE
  13. PRILOSEC [Concomitant]
     Active Substance: OMEPRAZOLE MAGNESIUM
  14. SOFOSBUVIR [Suspect]
     Active Substance: SOFOSBUVIR
     Indication: HEPATITIS C
     Dosage: 400 1XDAILY PO
     Route: 048
     Dates: start: 20140207, end: 20140330
  15. CAMBIA [Concomitant]
     Active Substance: DICLOFENAC POTASSIUM
  16. OXYCODONE [Concomitant]
     Active Substance: OXYCODONE
  17. LEXAPRO [Concomitant]
     Active Substance: ESCITALOPRAM OXALATE
  18. TOPAMAX [Concomitant]
     Active Substance: TOPIRAMATE
  19. ASPIRIN. [Concomitant]
     Active Substance: ASPIRIN
  20. VICODIN [Concomitant]
     Active Substance: ACETAMINOPHEN\HYDROCODONE BITARTRATE
  21. FOLIC ACID. [Concomitant]
     Active Substance: FOLIC ACID
  22. LASIX [Concomitant]
     Active Substance: FUROSEMIDE

REACTIONS (8)
  - Loss of consciousness [None]
  - Culture urine positive [None]
  - Pubis fracture [None]
  - Syncope [None]
  - Pancytopenia [None]
  - Febrile neutropenia [None]
  - Escherichia test positive [None]
  - Fall [None]

NARRATIVE: CASE EVENT DATE: 20140330
